FAERS Safety Report 23586079 (Version 1)
Quarter: 2024Q1

REPORT INFORMATION
  Report Type: Spontaneous
  Country: IT (occurrence: IT)
  Receive Date: 20240301
  Receipt Date: 20240301
  Transmission Date: 20240409
  Serious: Yes (Life-Threatening, Hospitalization)
  Sender: FDA-Public Use
  Company Number: IT-MYLANLABS-2024M1019332

PATIENT
  Sex: Male

DRUGS (1)
  1. EPINEPHRINE [Suspect]
     Active Substance: EPINEPHRINE
     Indication: Bradycardia neonatal
     Dosage: 0.3 MILLIGRAM,ADMINISTERED TWICE VIA THE UMBILICAL VEIN
     Route: 065

REACTIONS (1)
  - Drug ineffective [Unknown]
